FAERS Safety Report 7388777-7 (Version None)
Quarter: 2011Q2

REPORT INFORMATION
  Report Type: 
  Country: None (occurrence: None)
  Receive Date: 20110401
  Receipt Date: 20110323
  Transmission Date: 20111010
  Serious: Yes (Death, Other)
  Sender: FDA-Public Use
  Company Number: US-JNJFOC-NSADSS2001001169

PATIENT
  Age: 36 Year
  Sex: Male

DRUGS (24)
  1. VENLAFAXINE [Interacting]
     Route: 065
  2. QUETIAPINE [Interacting]
     Indication: PRODUCT USED FOR UNKNOWN INDICATION
     Dosage: 100 TO 250 MG EVERY DAY
     Route: 065
  3. FAMOTIDINE [Concomitant]
     Route: 065
  4. TRAMADOL [Suspect]
     Indication: PAIN
     Dosage: ONE TO TWO TABLETS AS NEEDED
     Route: 065
  5. FUROSEMIDE [Concomitant]
     Route: 065
  6. CHLORDIAZEPOXIDE [Concomitant]
     Route: 065
  7. THIAMINE [Concomitant]
     Route: 065
  8. LANSOPRAZOLE [Concomitant]
     Route: 065
  9. METOPROLOL [Concomitant]
     Route: 065
  10. TEMAZEPAM [Concomitant]
     Route: 065
  11. TRAZODONE HCL [Interacting]
     Route: 065
  12. ACETAMINOPHEN [Concomitant]
     Route: 065
  13. LORAZEPAM [Concomitant]
     Route: 065
  14. FOLIC ACID [Concomitant]
  15. VITAMIN B [Concomitant]
     Route: 065
  16. TRAZODONE [Interacting]
     Indication: PRODUCT USED FOR UNKNOWN INDICATION
     Route: 065
  17. PROMETHAZINE [Concomitant]
     Route: 065
  18. BENZONATATE [Concomitant]
     Route: 065
  19. RANITIDINE [Concomitant]
     Route: 065
  20. VENLAFAXINE [Interacting]
     Indication: PRODUCT USED FOR UNKNOWN INDICATION
     Route: 065
  21. LITHIUM [Concomitant]
     Route: 065
  22. ENALAPRIL MALEATE [Concomitant]
     Route: 065
  23. METOCLOPRAMIDE [Concomitant]
     Route: 065
  24. DOCUSATE SODIUM [Concomitant]
     Route: 065

REACTIONS (8)
  - CONVULSIVE THRESHOLD LOWERED [None]
  - TREMOR [None]
  - HEAD INJURY [None]
  - CONVULSION [None]
  - INSOMNIA [None]
  - DRUG INTERACTION [None]
  - TONGUE DISORDER [None]
  - SYNCOPE [None]
